FAERS Safety Report 14859086 (Version 3)
Quarter: 2021Q3

REPORT INFORMATION
  Report Type: Spontaneous
  Country: US (occurrence: US)
  Receive Date: 20180508
  Receipt Date: 20210820
  Transmission Date: 20211014
  Serious: Yes (Disabling)
  Sender: FDA-Public Use
  Company Number: US-TEVA-773401USA

PATIENT
  Age: 41 Year
  Sex: Female

DRUGS (13)
  1. DEXAMETHASONE. [Concomitant]
     Active Substance: DEXAMETHASONE
     Dosage: BID FOR 3 DAYS FOLLOWING CHEMOTHERAPY, 4 CYCLES
     Route: 048
     Dates: start: 201411
  2. PEGFILGRASTIM [Concomitant]
     Active Substance: PEGFILGRASTIM
     Dosage: 6MG/0.5ML
     Route: 058
     Dates: start: 20141229
  3. LEVONORGESTREL. [Suspect]
     Active Substance: LEVONORGESTREL
     Dosage: ONCE, 52MG
     Route: 015
     Dates: start: 201201
  4. DEXAMETHASONE. [Concomitant]
     Active Substance: DEXAMETHASONE
     Indication: PREMEDICATION
     Route: 042
     Dates: start: 20141117
  5. LORTAB [Concomitant]
     Active Substance: ACETAMINOPHEN\HYDROCODONE BITARTRATE
     Dosage: CONTINUING
     Dates: start: 2010
  6. DOCETAXEL ACCORD [Suspect]
     Active Substance: DOCETAXEL
     Indication: BREAST CANCER FEMALE
     Dosage: 4 CYCLES, EVERY 3 WEEKS
     Route: 042
     Dates: start: 201412, end: 20150120
  7. DOCETAXEL SAGENT [Suspect]
     Active Substance: DOCETAXEL
     Indication: BREAST CANCER FEMALE
     Dosage: 4 CYCLES, EVERY 3 WEEKS, 29?DEC?2014=147MG
     Route: 042
     Dates: start: 20141117, end: 20150120
  8. PROCHLORPERAZINE. [Concomitant]
     Active Substance: PROCHLORPERAZINE
     Indication: NAUSEA
     Dosage: 30 MILLIGRAM DAILY; AS REQUIRED
     Route: 048
     Dates: start: 20141117
  9. PROCHLORPERAZINE. [Concomitant]
     Active Substance: PROCHLORPERAZINE
     Indication: VOMITING
  10. CYCLOPHOSPHAMIDE. [Concomitant]
     Active Substance: CYCLOPHOSPHAMIDE
     Indication: BREAST CANCER FEMALE
     Dosage: 4 CYCLES, EVERY 3 WEEKS, 29?DEC?2014??1176MG
     Route: 042
     Dates: start: 20141117, end: 20150120
  11. GRANISETRON [Concomitant]
     Active Substance: GRANISETRON
     Route: 042
     Dates: start: 20141117
  12. DOCETAXEL SAGENT [Suspect]
     Active Substance: DOCETAXEL
     Dosage: 4 CYCLES, EVERY 3 WEEKS
     Route: 042
     Dates: start: 20141117, end: 20150120
  13. ONDANSETRON [Concomitant]
     Active Substance: ONDANSETRON
     Dosage: 16 MILLIGRAM DAILY;
     Route: 048
     Dates: start: 2014

REACTIONS (5)
  - Alopecia totalis [Not Recovered/Not Resolved]
  - Hair texture abnormal [Not Recovered/Not Resolved]
  - Hair colour changes [Not Recovered/Not Resolved]
  - Alopecia areata [Not Recovered/Not Resolved]
  - Madarosis [Not Recovered/Not Resolved]

NARRATIVE: CASE EVENT DATE: 201411
